FAERS Safety Report 15873324 (Version 2)
Quarter: 2019Q2

REPORT INFORMATION
  Report Type: Report from Study
  Country: BR (occurrence: BR)
  Receive Date: 20190126
  Receipt Date: 20190416
  Transmission Date: 20190711
  Serious: Yes (Hospitalization)
  Sender: FDA-Public Use
  Company Number: BR-AMGEN-BRACT2019010154

PATIENT
  Age: 51 Year
  Sex: Female

DRUGS (15)
  1. DARBEPOETIN ALFA [Suspect]
     Active Substance: DARBEPOETIN ALFA
     Dosage: 40 MICROGRAM, Q2WK
     Route: 058
     Dates: start: 20180412, end: 20180718
  2. DARBEPOETIN ALFA [Suspect]
     Active Substance: DARBEPOETIN ALFA
     Dosage: 90 MICROGRAM, Q4WK
     Route: 058
     Dates: start: 20180719, end: 20181205
  3. FUROSEMIDE. [Concomitant]
     Active Substance: FUROSEMIDE
     Dosage: UNK
     Dates: start: 2017
  4. CAPTOPRIL. [Concomitant]
     Active Substance: CAPTOPRIL
     Dosage: UNK
     Dates: start: 20181120, end: 20181120
  5. CARVEDIOL [Concomitant]
     Active Substance: CARVEDILOL
     Dosage: UNK
     Dates: start: 2015
  6. NPH INSULIN [Concomitant]
     Active Substance: INSULIN BEEF
     Dosage: UNK
     Dates: start: 2017
  7. NORIPURUM [Concomitant]
     Active Substance: IRON POLYMALTOSE
     Dosage: UNK
     Dates: start: 201711
  8. APRESOLIN [Concomitant]
     Active Substance: HYDRALAZINE HYDROCHLORIDE
     Dosage: UNK
     Dates: start: 2015
  9. ROSUVASTATIN. [Concomitant]
     Active Substance: ROSUVASTATIN
     Dosage: UNK
     Dates: start: 2017
  10. DARBEPOETIN ALFA [Suspect]
     Active Substance: DARBEPOETIN ALFA
     Dosage: UNK
     Route: 065
  11. DARBEPOETIN ALFA [Suspect]
     Active Substance: DARBEPOETIN ALFA
     Indication: ANAEMIA
     Dosage: 30 MICROGRAM, Q2WK
     Route: 058
     Dates: start: 20180327, end: 20180411
  12. DARBEPOETIN ALFA [Suspect]
     Active Substance: DARBEPOETIN ALFA
     Dosage: 120 MICROGRAM, Q4WK
     Route: 058
     Dates: start: 20181206, end: 20190102
  13. ENALAPRIL [Concomitant]
     Active Substance: ENALAPRIL
     Dosage: UNK
     Dates: start: 2015
  14. ACETYLSALICYLIC ACID [Concomitant]
     Active Substance: ASPIRIN
     Dosage: UNK
     Dates: start: 2017
  15. CLONAZEPAN [Concomitant]
     Active Substance: CLONAZEPAM
     Dosage: UNK
     Dates: start: 2017

REACTIONS (1)
  - Arteriovenous fistula thrombosis [Recovered/Resolved]

NARRATIVE: CASE EVENT DATE: 20181214
